FAERS Safety Report 6792793-3 (Version None)
Quarter: 2010Q2

REPORT INFORMATION
  Report Type: 
  Country: None (occurrence: None)
  Receive Date: 20100624
  Receipt Date: 20081002
  Transmission Date: 20101027
  Serious: No
  Sender: FDA-Public Use
  Company Number: US-PFIZER INC-2008081820

PATIENT
  Sex: Female
  Weight: 63.6 kg

DRUGS (2)
  1. GEODON [Suspect]
     Dates: end: 20060801
  2. WELLBUTRIN [Concomitant]

REACTIONS (2)
  - DRUG INEFFECTIVE [None]
  - PANIC ATTACK [None]
